FAERS Safety Report 8855486 (Version 1)
Quarter: 2012Q4

REPORT INFORMATION
  Report Type: 
  Country: US (occurrence: US)
  Receive Date: 20121023
  Receipt Date: 20121023
  Transmission Date: 20130627
  Serious: No
  Sender: FDA-Public Use
  Company Number: US-AMGEN-USASP2012059749

PATIENT
  Age: 66 Year
  Sex: Female

DRUGS (9)
  1. ENBREL [Suspect]
     Indication: PRODUCT USED FOR UNKNOWN INDICATION
     Dosage: 50 mg, qwk
     Route: 058
  2. AMLODIPIN                          /00972401/ [Concomitant]
     Dosage: 10 mg, UNK
  3. CRESTOR [Concomitant]
     Dosage: 20 mg, UNK
  4. ATENOLOL [Concomitant]
     Dosage: 100 mg, UNK
  5. VICODIN [Concomitant]
     Dosage: 5-500 mg,
  6. ADVIL                              /00044201/ [Concomitant]
     Dosage: 200 mg, UNK
  7. TRIAMTEREEN/HYDROCHLOOTTHIAZIDE [Concomitant]
     Dosage: 25-50,mg
  8. VESICARE [Concomitant]
     Dosage: 10 mg, UNK
  9. NEXIUM                             /01479302/ [Concomitant]
     Dosage: 20 mg, UNK

REACTIONS (1)
  - Cystitis [Unknown]
